FAERS Safety Report 16999981 (Version 1)
Quarter: 2019Q4

REPORT INFORMATION
  Report Type: Report from Study
  Country: US (occurrence: US)
  Receive Date: 20191106
  Receipt Date: 20191106
  Transmission Date: 20200122
  Serious: Yes (Hospitalization, Other)
  Sender: FDA-Public Use
  Company Number: US-GILEAD-2019-0436215

PATIENT
  Age: 33 Year
  Sex: Male

DRUGS (14)
  1. AZTREONAM LYSINE [Suspect]
     Active Substance: AZTREONAM LYSINE
     Indication: CYSTIC FIBROSIS
     Dosage: 75 MG (1 AMPULE) VIA ALTERA NEBULZER 3 TIMES A DAY FOR 28 DAYS EVERY OTHER MONTH
  2. AZITHROMYCIN ANHYDROUS. [Concomitant]
     Active Substance: AZITHROMYCIN ANHYDROUS
  3. ALBUTEROL SULFATE. [Concomitant]
     Active Substance: ALBUTEROL SULFATE
  4. VITAMINS NOS [Concomitant]
     Active Substance: VITAMINS
  5. BUSPIRONE HYDROCHLORIDE. [Concomitant]
     Active Substance: BUSPIRONE HYDROCHLORIDE
  6. SODIUM CHLORIDE. [Concomitant]
     Active Substance: SODIUM CHLORIDE
  7. VENTOLINE [SALBUTAMOL] [Concomitant]
     Active Substance: ALBUTEROL SULFATE
  8. DEXILANT [Concomitant]
     Active Substance: DEXLANSOPRAZOLE
  9. FLONASE [Concomitant]
     Active Substance: FLUTICASONE PROPIONATE
  10. PULMOZYME [Concomitant]
     Active Substance: DORNASE ALFA
  11. VITAMIN D [COLECALCIFEROL] [Concomitant]
     Active Substance: CHOLECALCIFEROL
  12. NOVOLOG [Concomitant]
     Active Substance: INSULIN ASPART
  13. SYMDEKO [Concomitant]
     Active Substance: IVACAFTOR\TEZACAFTOR
  14. ZENPEP [Concomitant]
     Active Substance: PANCRELIPASE AMYLASE\PANCRELIPASE LIPASE\PANCRELIPASE PROTEASE

REACTIONS (1)
  - Cholecystectomy [Unknown]
